FAERS Safety Report 21617696 (Version 3)
Quarter: 2024Q1

REPORT INFORMATION
  Report Type: Spontaneous
  Country: FR (occurrence: FR)
  Receive Date: 20221119
  Receipt Date: 20240320
  Transmission Date: 20240410
  Serious: Yes (Hospitalization)
  Sender: FDA-Public Use
  Company Number: FR-AFSSAPS-AN20222225

PATIENT
  Age: 82 Year
  Sex: Male
  Weight: 81 kg

DRUGS (4)
  1. CAPECITABINE [Suspect]
     Active Substance: CAPECITABINE
     Indication: Adenocarcinoma of colon
     Dosage: 2000 MILLIGRAM, ONCE A DAY
     Route: 048
     Dates: end: 20211017
  2. COMIRNATY (TOZINAMERAN) [Suspect]
     Active Substance: TOZINAMERAN
     Indication: COVID-19 immunisation
     Dosage: 1 DOSAGE FORM, 2 TOTAL (D1+D2)
     Route: 030
     Dates: start: 20210304, end: 20210331
  3. COMIRNATY (TOZINAMERAN) [Suspect]
     Active Substance: TOZINAMERAN
     Dosage: 1 DOSAGE FORM, 1 TOTAL (R1)
     Route: 030
     Dates: start: 20211011, end: 20211011
  4. COMIRNATY (TOZINAMERAN) [Concomitant]
     Active Substance: TOZINAMERAN
     Indication: COVID-19 immunisation
     Dosage: 1 DOSAGE FORM, 2 TOTAL (D1+D2)
     Route: 030
     Dates: start: 20210304, end: 20210331

REACTIONS (3)
  - Arthritis [Recovered/Resolved]
  - Cholecystitis [Recovered/Resolved]
  - Deep vein thrombosis [Recovered/Resolved]

NARRATIVE: CASE EVENT DATE: 20211027
